FAERS Safety Report 8836375 (Version 1)
Quarter: 2012Q4

REPORT INFORMATION
  Report Type: 
  Country: AU (occurrence: AU)
  Receive Date: 20121011
  Receipt Date: 20121011
  Transmission Date: 20130627
  Serious: Yes (Hospitalization, Other)
  Sender: FDA-Public Use
  Company Number: AU-ABBOTT-11P-008-0840517-00

PATIENT
  Sex: Male

DRUGS (8)
  1. HUMIRA 40 MG/ 0.8 ML PRE-FILLED SYRINGE [Suspect]
     Indication: CROHN^S DISEASE
     Dates: start: 2008
  2. HUMIRA 40 MG/ 0.8 ML PRE-FILLED SYRINGE [Suspect]
     Dates: start: 200905, end: 200912
  3. HUMIRA 40 MG/ 0.8 ML PRE-FILLED SYRINGE [Suspect]
     Dates: start: 20110901
  4. 6-MP [Concomitant]
     Indication: PRODUCT USED FOR UNKNOWN INDICATION
     Dates: start: 2007, end: 200905
  5. 6-MP [Concomitant]
     Dates: start: 2010
  6. ANTI-MAP [Concomitant]
     Indication: PRODUCT USED FOR UNKNOWN INDICATION
     Dates: start: 2008, end: 200905
  7. ANTI-MAP [Concomitant]
     Dates: start: 201001
  8. THIOPRINE [Concomitant]
     Indication: PRODUCT USED FOR UNKNOWN INDICATION

REACTIONS (6)
  - Colitis [Not Recovered/Not Resolved]
  - Anal abscess [Unknown]
  - Anal abscess [Unknown]
  - Crohn^s disease [Unknown]
  - Anal abscess [Unknown]
  - Colitis [Recovering/Resolving]
